FAERS Safety Report 4823950-0 (Version None)
Quarter: 2005Q4

REPORT INFORMATION
  Report Type: 
  Country: None (occurrence: None)
  Receive Date: 20051109
  Receipt Date: 20051107
  Transmission Date: 20060501
  Serious: Yes (Other)
  Sender: FDA-Public Use
  Company Number: US-JNJFOC-20050607460

PATIENT
  Sex: Female
  Weight: 65.77 kg

DRUGS (3)
  1. LEVAQUIN [Suspect]
     Route: 048
  2. LEVAQUIN [Suspect]
     Route: 048
  3. LEVAQUIN [Suspect]
     Indication: UPPER RESPIRATORY TRACT INFECTION
     Route: 048

REACTIONS (2)
  - AGEUSIA [None]
  - ANOSMIA [None]
